FAERS Safety Report 9440246 (Version 2)
Quarter: 2013Q3

REPORT INFORMATION
  Report Type: Spontaneous
  Country: GB (occurrence: GB)
  Receive Date: 20130805
  Receipt Date: 20130923
  Transmission Date: 20140515
  Serious: Yes (Other)
  Sender: FDA-Public Use
  Company Number: PHFR2013GB004445

PATIENT
  Sex: Male

DRUGS (4)
  1. CLOZARIL [Suspect]
     Indication: SCHIZOPHRENIA
     Dosage: 250 MG, DAILY
     Route: 048
     Dates: start: 20130712
  2. CLOZARIL [Suspect]
     Dosage: 300 MG, DAILY
     Route: 048
     Dates: start: 20130713, end: 20130902
  3. SODIUM VALPROATE [Concomitant]
     Dosage: 1500 MG, DAILY
     Route: 048
  4. PREGABALIN [Concomitant]
     Dosage: 200 MG, DAILY
     Route: 048

REACTIONS (2)
  - Hypertension [Recovered/Resolved]
  - Blood pressure diastolic increased [Not Recovered/Not Resolved]
